FAERS Safety Report 9970093 (Version 1)
Quarter: 2014Q1

REPORT INFORMATION
  Report Type: Spontaneous
  Country: US (occurrence: None)
  Receive Date: 20140131
  Receipt Date: 20140131
  Transmission Date: 20141002
  Serious: Yes (Other)
  Sender: FDA-Public Use
  Company Number: 076434

PATIENT
  Age: 21 Year
  Sex: Male

DRUGS (1)
  1. KEPPRA [Suspect]
     Indication: COMPLEX PARTIAL SEIZURES
     Dosage: 3500 MG, DOSE:  500 MG, 3 TABLET IN THE AM AND 4 TABLETS IN THE PM

REACTIONS (4)
  - Convulsion [None]
  - Prescribed overdose [None]
  - Inappropriate schedule of drug administration [None]
  - Medication residue present [None]
